FAERS Safety Report 8556049 (Version 3)
Quarter: 2013Q2

REPORT INFORMATION
  Report Type: Spontaneous
  Country: US (occurrence: US)
  Receive Date: 20120510
  Receipt Date: 20130523
  Transmission Date: 20140414
  Serious: Yes (Hospitalization)
  Sender: FDA-Public Use
  Company Number: US-BAYER-2012-043828

PATIENT
  Age: 16 Year
  Sex: Female
  Weight: 57 kg

DRUGS (3)
  1. YAZ [Suspect]
     Indication: OVARIAN CYST
     Dosage: UNK
     Dates: start: 20081018, end: 201104
  2. GIANVI [Suspect]
     Dosage: UNK
     Dates: start: 20081018, end: 201104
  3. NAPROXEN [Concomitant]
     Indication: MIGRAINE

REACTIONS (4)
  - Deep vein thrombosis [None]
  - Deep vein thrombosis [None]
  - Deep vein thrombosis [None]
  - Off label use [None]
